FAERS Safety Report 15298691 (Version 1)
Quarter: 2018Q3

REPORT INFORMATION
  Report Type: Report from Study
  Country: US (occurrence: US)
  Receive Date: 20180820
  Receipt Date: 20180820
  Transmission Date: 20181010
  Serious: Yes (Hospitalization, Other)
  Sender: FDA-Public Use
  Company Number: US-AMGEN INC.-USASL2018105171

PATIENT
  Age: 63 Year
  Sex: Female

DRUGS (2)
  1. NITROGLYCERIN. [Concomitant]
     Active Substance: NITROGLYCERIN
     Indication: ANGINA PECTORIS
  2. AIMOVIG [Suspect]
     Active Substance: ERENUMAB-AOOE
     Indication: MIGRAINE PROPHYLAXIS
     Dosage: 140 MG, QMO
     Route: 065
     Dates: start: 20180729, end: 20180729

REACTIONS (24)
  - Decreased appetite [Unknown]
  - Pain in extremity [Unknown]
  - Influenza like illness [Unknown]
  - Pyrexia [Unknown]
  - Throat tightness [Not Recovered/Not Resolved]
  - Flushing [Unknown]
  - Pain [Not Recovered/Not Resolved]
  - Serum sickness [Unknown]
  - Constipation [Unknown]
  - Chest discomfort [Unknown]
  - Muscle tightness [Unknown]
  - Nausea [Unknown]
  - Memory impairment [Not Recovered/Not Resolved]
  - Rash [Unknown]
  - Gastrointestinal sounds abnormal [Unknown]
  - Dyspnoea [Not Recovered/Not Resolved]
  - Erythema [Not Recovered/Not Resolved]
  - Feeling hot [Unknown]
  - Blood pressure increased [Unknown]
  - Abdominal pain upper [Unknown]
  - Vomiting [Unknown]
  - Visual impairment [Not Recovered/Not Resolved]
  - Discomfort [Unknown]
  - Chills [Recovered/Resolved]

NARRATIVE: CASE EVENT DATE: 20180729
